FAERS Safety Report 15348841 (Version 1)
Quarter: 2018Q3

REPORT INFORMATION
  Report Type: Spontaneous
  Country: US (occurrence: US)
  Receive Date: 20180904
  Receipt Date: 20180904
  Transmission Date: 20181010
  Serious: Yes (Other)
  Sender: FDA-Public Use
  Company Number: US-ASTRAZENECA-2018SF09161

PATIENT
  Age: 72 Year
  Sex: Female
  Weight: 86.2 kg

DRUGS (5)
  1. TUDORZA PRESSAIR [Suspect]
     Active Substance: ACLIDINIUM BROMIDE
     Indication: CHRONIC OBSTRUCTIVE PULMONARY DISEASE
     Dosage: ONE INHALATION TWO TIMES A DAY
     Route: 055
     Dates: start: 2012
  2. LISINOPRIL. [Suspect]
     Active Substance: LISINOPRIL
     Indication: BLOOD PRESSURE ABNORMAL
     Route: 048
     Dates: start: 2000
  3. LEVOTHYROXINE. [Concomitant]
     Active Substance: LEVOTHYROXINE
     Indication: THYROID DISORDER
     Route: 048
  4. ADVAIR HFA [Concomitant]
     Active Substance: FLUTICASONE PROPIONATE\SALMETEROL XINAFOATE
     Dosage: 250 ONE INHALATION TWO TIMES A DAY
     Route: 055
     Dates: start: 2000
  5. FULL SIZE ASPIRIN [Concomitant]
     Indication: PROPHYLAXIS
     Dosage: SUPPOSED TO TAKE DAILY, BUT ONLY TAKING IT 3 TO 4 TIMES A WEEK.
     Route: 048

REACTIONS (11)
  - Device malfunction [Unknown]
  - Blindness [Unknown]
  - Drug dose omission [Not Recovered/Not Resolved]
  - Macular degeneration [Unknown]
  - Reading disorder [Unknown]
  - Obstructive airways disorder [Unknown]
  - Oxygen saturation decreased [Recovered/Resolved]
  - Chronic obstructive pulmonary disease [Unknown]
  - Dyspnoea [Recovered/Resolved]
  - Eye haemorrhage [Unknown]
  - Intentional device misuse [Unknown]

NARRATIVE: CASE EVENT DATE: 2012
